FAERS Safety Report 5872023-7 (Version None)
Quarter: 2008Q3

REPORT INFORMATION
  Report Type: 
  Country: None (occurrence: None)
  Receive Date: 20080902
  Receipt Date: 20080820
  Transmission Date: 20090109
  Serious: Yes (Hospitalization, Disabling, Other)
  Sender: FDA-Public Use
  Company Number: 2008AL009612

PATIENT
  Age: 65 Year
  Sex: Male

DRUGS (3)
  1. OXAZEPAM [Suspect]
     Indication: INSOMNIA
     Dosage: QD
     Dates: start: 20071231
  2. KETOGAN [Concomitant]
  3. INSULIN [Concomitant]

REACTIONS (3)
  - DIZZINESS [None]
  - FALL [None]
  - FEMUR FRACTURE [None]
